FAERS Safety Report 5038824-2 (Version None)
Quarter: 2006Q2

REPORT INFORMATION
  Report Type: 
  Country: None (occurrence: None)
  Receive Date: 20060627
  Receipt Date: 20060627
  Transmission Date: 20061013
  Serious: Yes (Hospitalization)
  Sender: FDA-Public Use
  Company Number: None

PATIENT
  Sex: Female
  Weight: 83.4619 kg

DRUGS (4)
  1. METHOTREXATE [Suspect]
     Indication: RHEUMATOID ARTHRITIS
     Dosage: 10 MG PO WEEKLY
     Route: 048
     Dates: start: 20060301, end: 20060320
  2. PREDNISONE [Concomitant]
  3. IBUPROFEN [Concomitant]
  4. RANITIDINE [Concomitant]

REACTIONS (5)
  - DIZZINESS [None]
  - HEADACHE [None]
  - NAUSEA [None]
  - SYNCOPE [None]
  - VOMITING [None]
